FAERS Safety Report 12105821 (Version 1)
Quarter: 2016Q1

REPORT INFORMATION
  Report Type: Report from Study
  Country: US (occurrence: US)
  Receive Date: 20160223
  Receipt Date: 20160223
  Transmission Date: 20160526
  Serious: No
  Sender: FDA-Public Use
  Company Number: US-AMGEN-USASL2016020148

PATIENT
  Age: 5 Year
  Sex: Female

DRUGS (1)
  1. ENBREL [Suspect]
     Active Substance: ETANERCEPT
     Indication: JUVENILE IDIOPATHIC ARTHRITIS
     Dosage: 25 MG, QWK
     Route: 065
     Dates: start: 20150113

REACTIONS (8)
  - Abscess [Unknown]
  - Fall [Unknown]
  - Mouth injury [Unknown]
  - Rash [Unknown]
  - Pyrexia [Unknown]
  - Nail pitting [Unknown]
  - Tooth fracture [Unknown]
  - Fatigue [Unknown]

NARRATIVE: CASE EVENT DATE: 2015
